FAERS Safety Report 23381091 (Version 1)
Quarter: 2024Q1

REPORT INFORMATION
  Report Type: Spontaneous
  Country: US (occurrence: US)
  Receive Date: 20240109
  Receipt Date: 20240109
  Transmission Date: 20240410
  Serious: No
  Sender: FDA-Public Use
  Company Number: US-ABBVIE-5576979

PATIENT
  Age: 68 Year
  Sex: Female
  Weight: 108 kg

DRUGS (2)
  1. RESTASIS [Suspect]
     Active Substance: CYCLOSPORINE
     Indication: Dry eye
     Dosage: 0.5MG/ML, FORM STRENGTH: 0.5 MILLIGRAM
     Route: 047
     Dates: start: 20231215, end: 20231215
  2. LUTEIN [Concomitant]
     Active Substance: LUTEIN
     Indication: Dry eye

REACTIONS (1)
  - Eye irritation [Recovered/Resolved]

NARRATIVE: CASE EVENT DATE: 20231215
